FAERS Safety Report 11754886 (Version 1)
Quarter: 2015Q4

REPORT INFORMATION
  Report Type: Report from Study
  Country: US (occurrence: US)
  Receive Date: 20151119
  Receipt Date: 20151119
  Transmission Date: 20160304
  Serious: Yes (Hospitalization)
  Sender: FDA-Public Use
  Company Number: US-BAYER-2015-413094

PATIENT
  Age: 58 Year
  Sex: Male

DRUGS (2)
  1. STIVARGA [Suspect]
     Active Substance: REGORAFENIB
     Indication: COLON CANCER
     Dosage: 160 MG, QD (FOR 21 DAYS EVERY 28 DAYS)
     Route: 048
     Dates: start: 20150822, end: 2015
  2. PREVACID [Concomitant]
     Active Substance: LANSOPRAZOLE

REACTIONS (15)
  - Impaired healing [None]
  - Haemorrhage [Unknown]
  - Incision site haemorrhage [None]
  - Hypophagia [Unknown]
  - Asthenia [Recovering/Resolving]
  - Decreased appetite [Recovering/Resolving]
  - Fatigue [Unknown]
  - Gait disturbance [None]
  - Dysphonia [None]
  - Decreased appetite [Unknown]
  - Dysphonia [None]
  - Headache [Unknown]
  - Glossodynia [Unknown]
  - Headache [None]
  - Vomiting [Unknown]

NARRATIVE: CASE EVENT DATE: 20150901
